FAERS Safety Report 14172585 (Version 1)
Quarter: 2017Q4

REPORT INFORMATION
  Report Type: Spontaneous
  Country: US (occurrence: US)
  Receive Date: 20171108
  Receipt Date: 20171108
  Transmission Date: 20180321
  Serious: Yes (Other)
  Sender: FDA-Public Use
  Company Number: None

PATIENT
  Sex: Female

DRUGS (5)
  1. VITD [Concomitant]
  2. POTTASSIUN [Concomitant]
  3. MELOXICAM. [Suspect]
     Active Substance: MELOXICAM
     Indication: ARTHRITIS
  4. MULTIVITAMINS [Concomitant]
     Active Substance: VITAMINS
  5. AMILORIDE HCL W/ HYDROCHLOROTHIAZIDE [Concomitant]
     Active Substance: AMILORIDE HYDROCHLORIDE\HYDROCHLOROTHIAZIDE

REACTIONS (3)
  - Nasal congestion [None]
  - Pain [None]
  - Furuncle [None]

NARRATIVE: CASE EVENT DATE: 20170914
